FAERS Safety Report 7708912-8 (Version None)
Quarter: 2011Q3

REPORT INFORMATION
  Report Type: 
  Country: None (occurrence: None)
  Receive Date: 20110825
  Receipt Date: 20110822
  Transmission Date: 20111222
  Serious: Yes (Death, Hospitalization, Other)
  Sender: FDA-Public Use
  Company Number: US-SANOFI-AVENTIS-2011SA053867

PATIENT
  Age: 84 Year
  Sex: Female
  Weight: 50 kg

DRUGS (14)
  1. MULTAQ [Suspect]
     Indication: ATRIAL FIBRILLATION
     Route: 048
     Dates: start: 20100909, end: 20100912
  2. CIPROFLOXACIN [Concomitant]
     Route: 065
     Dates: start: 20100903, end: 20100910
  3. AMLODIPINE BESYLATE AND BENAZEPRIL HCL [Concomitant]
     Dosage: 5-10MG
     Route: 048
     Dates: start: 20100809, end: 20100912
  4. SIMAVASTATIN [Concomitant]
     Route: 048
     Dates: start: 20100810, end: 20100912
  5. DIGOXIN [Concomitant]
     Route: 048
     Dates: start: 20100809, end: 20100912
  6. MIRTAZAPINE [Concomitant]
     Route: 048
     Dates: start: 20100811, end: 20100915
  7. DARVOCET-N 50 [Concomitant]
     Dosage: Q4H PRN
     Dates: start: 20100809, end: 20100916
  8. ARICEPT [Concomitant]
     Route: 048
     Dates: start: 20100809, end: 20100912
  9. VITAMIN B-12 [Concomitant]
     Route: 058
     Dates: start: 20100827, end: 20100912
  10. VITAMIN D [Concomitant]
     Dosage: DOSE:50000 UNIT(S)
     Dates: start: 20100813, end: 20100912
  11. KLOR-CON [Concomitant]
     Dosage: 2 TABLETS DAILY WITH FOOD
     Dates: start: 20100809, end: 20100912
  12. LORATADINE [Concomitant]
     Route: 048
     Dates: start: 20100809, end: 20100912
  13. COUMADIN [Concomitant]
     Route: 048
     Dates: start: 20100909, end: 20100912
  14. DILTIAZEM [Concomitant]
     Route: 048
     Dates: start: 20100809, end: 20100916

REACTIONS (2)
  - RENAL FAILURE ACUTE [None]
  - TOXICITY TO VARIOUS AGENTS [None]
